FAERS Safety Report 21260489 (Version 1)
Quarter: 2022Q3

REPORT INFORMATION
  Report Type: Spontaneous
  Country: GB (occurrence: GB)
  Receive Date: 20220826
  Receipt Date: 20220826
  Transmission Date: 20221027
  Serious: Yes (Hospitalization)
  Sender: FDA-Public Use
  Company Number: GB-PFIZER INC-PV202200043918

PATIENT
  Age: 72 Year
  Sex: Female

DRUGS (2)
  1. PAMIDRONATE DISODIUM [Suspect]
     Active Substance: PAMIDRONATE DISODIUM
     Dosage: 60 MG
     Route: 042
  2. SODIUM CHLORIDE [Concomitant]
     Active Substance: SODIUM CHLORIDE
     Dosage: 4 L, DAILY FOR THE FIRST 5 DAYS FROM ADMISSION
     Route: 042

REACTIONS (2)
  - Hypocalcaemia [Recovered/Resolved]
  - Blood parathyroid hormone [Recovered/Resolved]
